FAERS Safety Report 9265618 (Version 1)
Quarter: 2013Q2

REPORT INFORMATION
  Report Type: Spontaneous
  Country: JP (occurrence: JP)
  Receive Date: 20130501
  Receipt Date: 20130501
  Transmission Date: 20140414
  Serious: Yes (Death)
  Sender: FDA-Public Use
  Company Number: JP-MYLANLABS-2013S1008719

PATIENT
  Age: 64 Year
  Sex: Male

DRUGS (6)
  1. CARBOPLATIN [Suspect]
     Indication: ANGIOCENTRIC LYMPHOMA
     Route: 041
     Dates: start: 201106, end: 201109
  2. RITUXAN [Suspect]
     Indication: ANGIOCENTRIC LYMPHOMA
     Route: 041
     Dates: start: 201106, end: 201109
  3. RITUXAN [Suspect]
     Route: 041
     Dates: start: 201106, end: 201109
  4. NOVANTRON [Suspect]
     Indication: ANGIOCENTRIC LYMPHOMA
     Route: 041
     Dates: start: 201106, end: 201109
  5. ETOPOSIDE [Suspect]
     Indication: ANGIOCENTRIC LYMPHOMA
     Route: 041
     Dates: start: 201106, end: 201109
  6. PREDNISOLONE [Suspect]
     Indication: ANGIOCENTRIC LYMPHOMA
     Route: 041
     Dates: start: 201106, end: 201109

REACTIONS (1)
  - Acute monocytic leukaemia [Fatal]
